FAERS Safety Report 23740146 (Version 1)
Quarter: 2024Q2

REPORT INFORMATION
  Report Type: Spontaneous
  Country: US (occurrence: US)
  Receive Date: 20240414
  Receipt Date: 20240414
  Transmission Date: 20240716
  Serious: No
  Sender: FDA-Public Use
  Company Number: US-BIOGEN-2024BI01259179

PATIENT
  Age: 35 Year
  Sex: Female

DRUGS (1)
  1. ZURZUVAE [Suspect]
     Active Substance: ZURANOLONE
     Indication: Perinatal depression
     Route: 050

REACTIONS (6)
  - Sopor [Recovered/Resolved]
  - Tachyphrenia [Recovered/Resolved]
  - Psychomotor hyperactivity [Recovered/Resolved]
  - Feeling abnormal [Recovered/Resolved]
  - Fatigue [Recovered/Resolved]
  - Sedation [Recovered/Resolved]
